FAERS Safety Report 5076223-8 (Version None)
Quarter: 2006Q3

REPORT INFORMATION
  Report Type: 
  Country: None (occurrence: None)
  Receive Date: 20060807
  Receipt Date: 20060728
  Transmission Date: 20061208
  Serious: Yes (Hospitalization)
  Sender: FDA-Public Use
  Company Number: 228104

PATIENT
  Age: 45 Year
  Sex: Female

DRUGS (4)
  1. AVASTIN [Suspect]
     Indication: BREAST CANCER
     Dates: start: 20060718
  2. DOXORUBICIN HCL [Suspect]
     Indication: BREAST CANCER
     Dates: start: 20060718
  3. CYCLOPHOSPHAMIDE [Suspect]
     Indication: BREAST CANCER
     Dates: start: 20060718
  4. NEULASTA [Concomitant]

REACTIONS (2)
  - ABDOMINAL PAIN [None]
  - FEBRILE NEUTROPENIA [None]
